FAERS Safety Report 5340088-7 (Version None)
Quarter: 2007Q2

REPORT INFORMATION
  Report Type: 
  Country: None (occurrence: None)
  Receive Date: 20070531
  Receipt Date: 20070528
  Transmission Date: 20071010
  Serious: Yes (Other)
  Sender: FDA-Public Use
  Company Number: JP-SP-2007-01309

PATIENT
  Age: 64 Year
  Sex: Male

DRUGS (8)
  1. IMMUCYST [Suspect]
     Indication: CARCINOMA IN SITU OF BLADDER
     Route: 043
     Dates: start: 20060529, end: 20060719
  2. IMMUCYST [Suspect]
     Route: 043
     Dates: start: 20060529, end: 20060719
  3. SPHERICAL ABSORBENT COAL [Concomitant]
     Route: 048
     Dates: start: 20050829
  4. FAMOTIDINE [Concomitant]
     Route: 048
     Dates: start: 20060308
  5. ALLOPURINOL [Concomitant]
     Route: 048
     Dates: start: 20051031
  6. TEPRENONE [Concomitant]
     Route: 048
     Dates: start: 20060308
  7. SENNOSIDE [Concomitant]
     Route: 048
     Dates: start: 20050823, end: 20060719
  8. GLYCYRRHIZIC ACID/DL-METHIONINE [Concomitant]
     Dosage: 3 TAB DAILY
     Route: 048
     Dates: start: 20060215

REACTIONS (5)
  - APPETITE DISORDER [None]
  - CYSTITIS [None]
  - DYSURIA [None]
  - MALAISE [None]
  - NAUSEA [None]
